FAERS Safety Report 15483552 (Version 1)
Quarter: 2018Q4

REPORT INFORMATION
  Report Type: Spontaneous
  Country: GB (occurrence: GB)
  Receive Date: 20181010
  Receipt Date: 20181010
  Transmission Date: 20190205
  Serious: Yes (Other)
  Sender: FDA-Public Use
  Company Number: GB-BAYER-2018-184931

PATIENT

DRUGS (1)
  1. GADOLINIUM IN UNSPECIFIED DRUG [Suspect]
     Active Substance: GADOLINIUM
     Dosage: UNK

REACTIONS (9)
  - Paraesthesia [None]
  - Visual impairment [None]
  - Headache [None]
  - External ear inflammation [None]
  - Contrast media deposition [None]
  - Oropharyngeal pain [None]
  - Lymphadenopathy [None]
  - Feeling abnormal [None]
  - Fatigue [None]
